FAERS Safety Report 5775028-X (Version None)
Quarter: 2008Q2

REPORT INFORMATION
  Report Type: 
  Country: None (occurrence: None)
  Receive Date: 20080617
  Receipt Date: 20080617
  Transmission Date: 20081010
  Serious: Yes (Life-Threatening)
  Sender: FDA-Public Use
  Company Number: None

PATIENT
  Age: 50 Year
  Sex: Male
  Weight: 74 kg

DRUGS (9)
  1. HEPARIN [Suspect]
     Dosage: VAR IV CONT. INF
     Route: 042
     Dates: start: 20080220, end: 20080222
  2. FUROSEMIDE [Concomitant]
  3. IBUROFEN [Concomitant]
  4. SSI [Concomitant]
  5. LACTULOSE [Concomitant]
  6. LANSOPRAZOLE [Concomitant]
  7. NADOLOL [Concomitant]
  8. ZOSYN [Concomitant]
  9. SPIRONOLACTONE [Concomitant]

REACTIONS (4)
  - ACTIVATED PARTIAL THROMBOPLASTIN TIME PROLONGED [None]
  - BLOOD CREATININE INCREASED [None]
  - HAEMOGLOBIN DECREASED [None]
  - HYPOTENSION [None]
